FAERS Safety Report 6231930-6 (Version None)
Quarter: 2009Q2

REPORT INFORMATION
  Report Type: 
  Country: None (occurrence: None)
  Receive Date: 20090616
  Receipt Date: 20090527
  Transmission Date: 20091009
  Serious: Yes (Hospitalization)
  Sender: FDA-Public Use
  Company Number: TR-ELI_LILLY_AND_COMPANY-TR200906003371

PATIENT
  Age: 60 Year
  Sex: Female

DRUGS (5)
  1. HUMULIN R [Suspect]
     Indication: DIABETES MELLITUS
     Dosage: 16 IU, 3/D
     Route: 058
     Dates: start: 20050101
  2. LANTUS [Concomitant]
     Indication: DIABETES MELLITUS
     Dosage: 20 IU, EACH EVENING
     Route: 058
  3. GLUCOBAY [Concomitant]
     Indication: DIABETES MELLITUS
     Dosage: UNK, 2/D
     Route: 058
  4. GLUFORMIN [Concomitant]
     Indication: DIABETES MELLITUS
     Dosage: UNK, 2/D
     Route: 058
  5. AMLODIPINE /00972402/ [Concomitant]
     Indication: BLOOD PRESSURE
     Dosage: UNK, DAILY (1/D)

REACTIONS (2)
  - ABDOMINAL DISTENSION [None]
  - HOSPITALISATION [None]
